FAERS Safety Report 10598251 (Version 1)
Quarter: 2014Q4

REPORT INFORMATION
  Report Type: Spontaneous
  Country: BR (occurrence: BR)
  Receive Date: 20141121
  Receipt Date: 20141121
  Transmission Date: 20150529
  Serious: Yes (Hospitalization, Other)
  Sender: FDA-Public Use
  Company Number: BR-PFIZER INC-2014316944

PATIENT
  Age: 60 Year
  Sex: Female
  Weight: 61 kg

DRUGS (8)
  1. GLIFAGE [Concomitant]
     Active Substance: METFORMIN HYDROCHLORIDE
     Indication: DIABETES MELLITUS
     Dosage: 1 TABLET, 2X/DAY
     Dates: start: 2010
  2. RIVOTRIL [Concomitant]
     Active Substance: CLONAZEPAM
     Indication: NERVOUS SYSTEM DISORDER
  3. CITALOR [Suspect]
     Active Substance: ATORVASTATIN
     Dosage: UNK
     Route: 048
  4. LIPEX [Concomitant]
     Active Substance: SIMVASTATIN
     Indication: BLOOD CHOLESTEROL ABNORMAL
     Dosage: 1 TABLET, 1X/DAY
     Dates: start: 2012
  5. RIVOTRIL [Concomitant]
     Active Substance: CLONAZEPAM
     Indication: DEPRESSION
     Dosage: 1 TABLET AND A HALF, 1X/DAY
     Dates: start: 2006
  6. SELOZOK [Concomitant]
     Active Substance: METOPROLOL SUCCINATE
     Indication: HYPERTENSION
     Dosage: 1 TABLET, 1X/DAY
     Dates: start: 2009
  7. SERTRALINE [Concomitant]
     Active Substance: SERTRALINE HYDROCHLORIDE
     Indication: DEPRESSION
     Dosage: 2 TABLETS 1X/DAY
     Dates: start: 2013
  8. LOSARTAN [Concomitant]
     Active Substance: LOSARTAN
     Indication: HYPERTENSION
     Dosage: 1 TABLET, 1X/DAY
     Dates: start: 201409

REACTIONS (4)
  - Hiatus hernia [Unknown]
  - Duodenal ulcer [Unknown]
  - Chronic gastritis [Unknown]
  - Intervertebral disc protrusion [Unknown]
